FAERS Safety Report 10543143 (Version 1)
Quarter: 2014Q4

REPORT INFORMATION
  Report Type: Report from Study
  Country: PE (occurrence: PE)
  Receive Date: 20141027
  Receipt Date: 20141027
  Transmission Date: 20150529
  Serious: Yes (Other)
  Sender: FDA-Public Use
  Company Number: PE-ROCHE-1478774

PATIENT
  Age: 50 Year
  Sex: Female

DRUGS (1)
  1. HERCEPTIN [Suspect]
     Active Substance: TRASTUZUMAB
     Indication: BREAST CANCER
     Dosage: LAST APPLICATION 16/SEP/2014
     Route: 042
     Dates: start: 20111209

REACTIONS (2)
  - Lung operation [Unknown]
  - Metastases to lung [Unknown]

NARRATIVE: CASE EVENT DATE: 201409
